FAERS Safety Report 18278547 (Version 2)
Quarter: 2020Q4

REPORT INFORMATION
  Report Type: Spontaneous
  Country: CO (occurrence: CO)
  Receive Date: 20200917
  Receipt Date: 20201026
  Transmission Date: 20210113
  Serious: Yes (Other)
  Sender: FDA-Public Use
  Company Number: CO-PFIZER INC-2020027387

PATIENT
  Age: 77 Year
  Sex: Female

DRUGS (1)
  1. REAMPLA [Suspect]
     Active Substance: PALBOCICLIB
     Indication: BREAST CANCER METASTATIC
     Dosage: 125 MG, CYCLIC (21 DAYS AND REST 7)
     Route: 048
     Dates: start: 201912

REACTIONS (13)
  - Decreased immune responsiveness [Not Recovered/Not Resolved]
  - Tongue exfoliation [Unknown]
  - Headache [Recovered/Resolved]
  - Nervousness [Unknown]
  - Bone pain [Recovered/Resolved]
  - Blood disorder [Not Recovered/Not Resolved]
  - Red blood cell count decreased [Recovering/Resolving]
  - Dengue fever [Recovered/Resolved]
  - Cough [Recovering/Resolving]
  - Angiopathy [Not Recovered/Not Resolved]
  - Depressed mood [Unknown]
  - White blood cell count decreased [Recovering/Resolving]
  - Productive cough [Recovering/Resolving]

NARRATIVE: CASE EVENT DATE: 2020
